FAERS Safety Report 24083959 (Version 1)
Quarter: 2024Q3

REPORT INFORMATION
  Report Type: Spontaneous
  Country: US (occurrence: None)
  Receive Date: 20240711
  Receipt Date: 20240711
  Transmission Date: 20241016
  Serious: Yes (Hospitalization)
  Sender: Public
  Company Number: None

PATIENT
  Age: 69 Year
  Sex: Female

DRUGS (1)
  1. MEKINIST [Suspect]
     Active Substance: TRAMETINIB DIMETHYL SULFOXIDE
     Indication: Pancreatic carcinoma
     Dosage: FREQUENCY : DAILY;?
     Dates: start: 20240613

REACTIONS (6)
  - Urinary tract infection [None]
  - Colitis [None]
  - Pyrexia [None]
  - Blood sodium decreased [None]
  - Blood potassium decreased [None]
  - Therapy interrupted [None]
